FAERS Safety Report 12333624 (Version 2)
Quarter: 2016Q2

REPORT INFORMATION
  Report Type: Report from Study
  Country: US (occurrence: US)
  Receive Date: 20160504
  Receipt Date: 20160523
  Transmission Date: 20160815
  Serious: Yes (Death, Hospitalization)
  Sender: FDA-Public Use
  Company Number: US-JNJFOC-20160500034

PATIENT
  Age: 68 Year
  Sex: Female
  Weight: 54 kg

DRUGS (1)
  1. XARELTO [Suspect]
     Active Substance: RIVAROXABAN
     Indication: PULMONARY EMBOLISM
     Route: 048
     Dates: start: 20140313, end: 20140910

REACTIONS (9)
  - Rectal haemorrhage [Recovered/Resolved]
  - Urinary tract infection [Recovered/Resolved]
  - Death [Fatal]
  - Vaginal haemorrhage [Recovered/Resolved]
  - Acute kidney injury [Recovered/Resolved]
  - Frequent bowel movements [Unknown]
  - Pelvic mass [Unknown]
  - Neoplasm [Unknown]
  - Polyuria [Unknown]

NARRATIVE: CASE EVENT DATE: 2014
